FAERS Safety Report 8304575-1 (Version None)
Quarter: 2012Q2

REPORT INFORMATION
  Report Type: 
  Country: None (occurrence: None)
  Receive Date: 20120423
  Receipt Date: 20120416
  Transmission Date: 20120825
  Serious: Yes (Other)
  Sender: FDA-Public Use
  Company Number: FR-GLAXOSMITHKLINE-B0796634A

PATIENT
  Sex: Female
  Weight: 71 kg

DRUGS (2)
  1. GEMCITABINE [Suspect]
     Indication: LEIOMYOSARCOMA
     Dosage: 15800MG CUMULATIVE DOSE
     Route: 042
     Dates: start: 20111117
  2. VOTRIENT [Suspect]
     Indication: LEIOMYOSARCOMA
     Route: 048
     Dates: start: 20111117

REACTIONS (1)
  - TRANSIENT ISCHAEMIC ATTACK [None]
